FAERS Safety Report 10221035 (Version 1)
Quarter: 2014Q2

REPORT INFORMATION
  Report Type: Spontaneous
  Country: US (occurrence: US)
  Receive Date: 20140606
  Receipt Date: 20140606
  Transmission Date: 20141212
  Serious: Yes (Other)
  Sender: FDA-Public Use
  Company Number: US-SA-2014SA072309

PATIENT
  Sex: Female

DRUGS (1)
  1. LASIX [Suspect]
     Indication: PRODUCT USED FOR UNKNOWN INDICATION
     Route: 065

REACTIONS (6)
  - Abasia [Unknown]
  - Peripheral swelling [Unknown]
  - Paraesthesia [Unknown]
  - Burning sensation [Unknown]
  - Lymphoedema [Unknown]
  - Peripheral swelling [Unknown]
